FAERS Safety Report 13245445 (Version 1)
Quarter: 2017Q1

REPORT INFORMATION
  Report Type: Spontaneous
  Country: FR (occurrence: FR)
  Receive Date: 20170217
  Receipt Date: 20170217
  Transmission Date: 20170428
  Serious: Yes (Other)
  Sender: FDA-Public Use
  Company Number: FR-FRESENIUS KABI-FK201701340

PATIENT
  Age: 57 Year
  Sex: Female

DRUGS (4)
  1. OXALIPLATIN 5MG/ML CONCENTRATE FOR SOLUTION FOR INFUSION [Suspect]
     Active Substance: OXALIPLATIN
     Indication: CERVIX CANCER METASTATIC
     Route: 042
  2. AVASTIN [Concomitant]
     Active Substance: BEVACIZUMAB
     Indication: CERVIX CANCER METASTATIC
  3. FOLINIC ACID [Concomitant]
     Active Substance: LEUCOVORIN
     Indication: CERVIX CANCER METASTATIC
  4. FLUOROURACIL. [Concomitant]
     Active Substance: FLUOROURACIL
     Indication: CERVIX CANCER METASTATIC

REACTIONS (3)
  - Discomfort [Recovered/Resolved]
  - Dysphagia [Recovered/Resolved]
  - Paraesthesia [Recovered/Resolved]

NARRATIVE: CASE EVENT DATE: 20170123
